FAERS Safety Report 4293949-4 (Version None)
Quarter: 2004Q1

REPORT INFORMATION
  Report Type: 
  Country: None (occurrence: None)
  Receive Date: 20040212
  Receipt Date: 20040212
  Transmission Date: 20041129
  Serious: Yes (Life-Threatening)
  Sender: FDA-Public Use
  Company Number: None

PATIENT
  Age: 52 Year
  Sex: Male
  Weight: 46.7205 kg

DRUGS (11)
  1. ENOXAPARIN 100 MG AVENTIS PHARMACEUT [Suspect]
     Indication: DEEP VEIN THROMBOSIS
     Dosage: 100 MG Q 12 H SQ
     Route: 058
     Dates: start: 20040125, end: 20040202
  2. ENOXAPARIN 100 MG AVENTIS PHARMACEUT [Suspect]
     Indication: PULMONARY EMBOLISM
     Dosage: 100 MG Q 12 H SQ
     Route: 058
     Dates: start: 20040125, end: 20040202
  3. CYCLOSPORINE [Concomitant]
  4. IMMUNE GLOBULIN (HUMAN) [Concomitant]
  5. ACYCLOVIR [Concomitant]
  6. METOPROLOL TARTRATE [Concomitant]
  7. PANTOPRAZOLE [Concomitant]
  8. AZITHROMYCIN [Concomitant]
  9. PAXIL [Concomitant]
  10. GEMFIBROZIL [Concomitant]
  11. LIPOSOMAL AMPHOTERICIN [Concomitant]

REACTIONS (1)
  - SUBDURAL HAEMATOMA [None]
